FAERS Safety Report 5309027-9 (Version None)
Quarter: 2007Q2

REPORT INFORMATION
  Report Type: 
  Country: None (occurrence: None)
  Receive Date: 20070426
  Receipt Date: 20070418
  Transmission Date: 20071010
  Serious: Yes (Death)
  Sender: FDA-Public Use
  Company Number: US-ABBOTT-02P-163-0201356-00

PATIENT
  Age: 5 Year
  Sex: Female

DRUGS (3)
  1. VALPROIC ACID [Suspect]
     Indication: DRUG USE FOR UNKNOWN INDICATION
     Dosage: NOT REPORTED
     Dates: end: 20000101
  2. ACETAMINOPHEN [Suspect]
     Indication: DRUG USE FOR UNKNOWN INDICATION
     Dosage: NOT REPORTED
     Dates: end: 20000101
  3. SODIUM BROMIDE [Suspect]
     Indication: DRUG USE FOR UNKNOWN INDICATION
     Dosage: NOT REPORTED
     Dates: end: 20000101

REACTIONS (6)
  - ACUTE HEPATIC FAILURE [None]
  - BRAIN OEDEMA [None]
  - CONVULSION [None]
  - HEPATIC NECROSIS [None]
  - INFLUENZA LIKE ILLNESS [None]
  - PYREXIA [None]
